FAERS Safety Report 6310903-9 (Version None)
Quarter: 2009Q3

REPORT INFORMATION
  Report Type: 
  Country: None (occurrence: None)
  Receive Date: 20090812
  Receipt Date: 20090728
  Transmission Date: 20100115
  Serious: Yes (Other)
  Sender: FDA-Public Use
  Company Number: JPI-P-007393

PATIENT
  Age: 39 Year
  Sex: Female

DRUGS (12)
  1. XYREM [Suspect]
     Indication: CATAPLEXY
     Dosage: SEE IMAGE
     Route: 048
     Dates: start: 20090510, end: 20090521
  2. XYREM [Suspect]
     Indication: CATAPLEXY
     Dosage: SEE IMAGE
     Route: 048
     Dates: start: 20090522, end: 20090602
  3. XYREM [Suspect]
     Indication: CATAPLEXY
     Dosage: SEE IMAGE
     Route: 048
     Dates: start: 20090603, end: 20090606
  4. XYREM [Suspect]
     Indication: CATAPLEXY
     Dosage: SEE IMAGE
     Route: 048
     Dates: start: 20090607, end: 20090627
  5. XYREM [Suspect]
     Indication: CATAPLEXY
     Dosage: SEE IMAGE
     Route: 048
     Dates: start: 20090628, end: 20090722
  6. XYREM [Suspect]
     Indication: CATAPLEXY
     Dosage: SEE IMAGE
     Route: 048
     Dates: start: 20090628, end: 20090722
  7. MODAFINIL [Concomitant]
  8. SLEEPING PILL [Concomitant]
  9. PMS-ZOPICLONE [Concomitant]
  10. BIRTH CONTROL PILL [Concomitant]
  11. PMS-ZOPICLONE [Concomitant]
  12. BIRTH CONTROL PILL [Concomitant]

REACTIONS (15)
  - ACNE [None]
  - ANXIETY [None]
  - ASTHENIA [None]
  - DECREASED APPETITE [None]
  - DIZZINESS [None]
  - FATIGUE [None]
  - MICTURITION URGENCY [None]
  - MIDDLE INSOMNIA [None]
  - NAUSEA [None]
  - PALPITATIONS [None]
  - PANIC DISORDER [None]
  - RETCHING [None]
  - TREMOR [None]
  - VOMITING [None]
  - WEIGHT DECREASED [None]
